FAERS Safety Report 7048937-1 (Version None)
Quarter: 2010Q4

REPORT INFORMATION
  Report Type: 
  Country: None (occurrence: None)
  Receive Date: 20101018
  Receipt Date: 20101018
  Transmission Date: 20110411
  Serious: Yes (Hospitalization)
  Sender: FDA-Public Use
  Company Number: PHHO2009FR13371

PATIENT
  Sex: Female
  Weight: 85 kg

DRUGS (3)
  1. AFINITOR [Suspect]
     Indication: RENAL CANCER METASTATIC
     Dosage: UNK
     Route: 048
     Dates: start: 20080229
  2. VALACYCLOVIR HYDROCHLORIDE [Concomitant]
     Indication: LUNG INFECTION
  3. BACTRIM [Concomitant]
     Indication: LUNG INFECTION

REACTIONS (3)
  - LUNG LOBECTOMY [None]
  - LUNG NEOPLASM [None]
  - METASTASES TO LUNG [None]
